FAERS Safety Report 9379152 (Version 2)
Quarter: 2014Q4

REPORT INFORMATION
  Report Type: Spontaneous
  Country: BE (occurrence: BE)
  Receive Date: 20130702
  Receipt Date: 20141204
  Transmission Date: 20150529
  Serious: Yes (Life-Threatening, Hospitalization, Other)
  Sender: FDA-Public Use
  Company Number: BE-JNJFOC-20130614113

PATIENT
  Age: 33 Year
  Sex: Male
  Weight: 65 kg

DRUGS (5)
  1. ASAFLOW [Suspect]
     Active Substance: ASPIRIN
     Indication: PRODUCT USED FOR UNKNOWN INDICATION
     Route: 065
  2. PLAVIX [Suspect]
     Active Substance: CLOPIDOGREL BISULFATE
     Indication: PRODUCT USED FOR UNKNOWN INDICATION
     Route: 065
  3. REOPRO [Suspect]
     Active Substance: ABCIXIMAB
     Indication: STENT PLACEMENT
     Route: 065
  4. REOPRO [Suspect]
     Active Substance: ABCIXIMAB
     Indication: ANGINA UNSTABLE
     Route: 065
  5. REOPRO [Suspect]
     Active Substance: ABCIXIMAB
     Indication: THROMBOSIS
     Route: 065

REACTIONS (2)
  - Pulmonary alveolar haemorrhage [Recovering/Resolving]
  - Acute coronary syndrome [Recovering/Resolving]
